FAERS Safety Report 5869327-0 (Version None)
Quarter: 2008Q3

REPORT INFORMATION
  Report Type: 
  Country: None (occurrence: None)
  Receive Date: 20080828
  Receipt Date: 20070424
  Transmission Date: 20090109
  Serious: Yes (Life-Threatening, Hospitalization)
  Sender: FDA-Public Use
  Company Number: SHI_00032_2007

PATIENT
  Age: 52 Year
  Sex: Female

DRUGS (5)
  1. SEFTEM (SEFTEM) [Suspect]
     Indication: UPPER RESPIRATORY TRACT INFLAMMATION
     Dosage: ORAL
     Route: 048
     Dates: start: 20060531
  2. PREDONINE /00016201/ (PREDONINE) [Suspect]
     Indication: STEVENS-JOHNSON SYNDROME
     Dosage: (60 MG QD)
     Dates: start: 20060101
  3. PRANOPROFEN [Concomitant]
  4. METHYLPREDNISOLONE 16MG TAB [Concomitant]
  5. URSODEOXYCHOLIC ACID [Concomitant]

REACTIONS (9)
  - BILE DUCT OBSTRUCTION [None]
  - CHOLANGITIS [None]
  - CHOLESTASIS [None]
  - CYTOMEGALOVIRUS GASTROENTERITIS [None]
  - CYTOMEGALOVIRUS INFECTION [None]
  - JAUNDICE [None]
  - LIVER DISORDER [None]
  - SMALL INTESTINAL PERFORATION [None]
  - STEVENS-JOHNSON SYNDROME [None]
